FAERS Safety Report 9295133 (Version 6)
Quarter: 2014Q1

REPORT INFORMATION
  Report Type: Report from Study
  Country: GB (occurrence: GB)
  Receive Date: 20130517
  Receipt Date: 20140219
  Transmission Date: 20141002
  Serious: Yes (Hospitalization, Other)
  Sender: FDA-Public Use
  Company Number: GB-ROCHE-1224720

PATIENT
  Age: 80 Year
  Sex: Female

DRUGS (4)
  1. RANIBIZUMAB [Suspect]
     Indication: AGE-RELATED MACULAR DEGENERATION
     Dosage: LAST DOSE PRIOR TO SAE ON 19/OCT/2012
     Route: 050
     Dates: start: 20120702
  2. OMEPRAZOLE [Concomitant]
     Route: 065
     Dates: start: 201006, end: 20130103
  3. OMEPRAZOLE [Concomitant]
     Route: 065
     Dates: start: 201301
  4. OMEPRAZOLE [Concomitant]
     Route: 065
     Dates: start: 20130228

REACTIONS (6)
  - Glomerulonephritis rapidly progressive [Recovered/Resolved with Sequelae]
  - Haemoptysis [Recovered/Resolved]
  - Pulmonary embolism [Recovered/Resolved]
  - Malaise [Recovered/Resolved]
  - Lung consolidation [Recovered/Resolved]
  - Local swelling [Unknown]
